FAERS Safety Report 13433087 (Version 2)
Quarter: 2017Q2

REPORT INFORMATION
  Report Type: Report from Study
  Country: None (occurrence: DE)
  Receive Date: 20170412
  Receipt Date: 20170419
  Transmission Date: 20170830
  Serious: Yes (Hospitalization, Other)
  Sender: FDA-Public Use
  Company Number: DE-ABBVIE-17P-062-1940291-00

PATIENT
  Sex: Male
  Weight: 72 kg

DRUGS (1)
  1. DUODOPA [Suspect]
     Active Substance: CARBIDOPA\LEVODOPA
     Indication: PARKINSON^S DISEASE
     Route: 050

REACTIONS (8)
  - Stoma site inflammation [Recovering/Resolving]
  - Fatigue [Unknown]
  - Stoma site hypergranulation [Recovering/Resolving]
  - Hallucination [Recovering/Resolving]
  - Cataract operation [Unknown]
  - Dyspnoea [Unknown]
  - Somnolence [Unknown]
  - Stoma site erythema [Recovering/Resolving]

NARRATIVE: CASE EVENT DATE: 20170120
